FAERS Safety Report 10205985 (Version 3)
Quarter: 2014Q2

REPORT INFORMATION
  Report Type: Spontaneous
  Country: US (occurrence: US)
  Receive Date: 20140530
  Receipt Date: 20140619
  Transmission Date: 20141212
  Serious: Yes (Other)
  Sender: FDA-Public Use
  Company Number: US-AMGEN-USASP2014039875

PATIENT
  Age: 39 Year
  Sex: Female

DRUGS (1)
  1. ENBREL [Suspect]
     Indication: PSORIASIS
     Dosage: 50 MG, 2 TIMES/WK (FOR THREE MONTHS)
     Route: 058
     Dates: start: 2009, end: 201405

REACTIONS (3)
  - Breast cancer [Unknown]
  - Skin haemorrhage [Unknown]
  - Psoriasis [Unknown]
